FAERS Safety Report 7443458-6 (Version None)
Quarter: 2011Q2

REPORT INFORMATION
  Report Type: 
  Country: None (occurrence: None)
  Receive Date: 20110428
  Receipt Date: 20110418
  Transmission Date: 20111010
  Serious: Yes (Other)
  Sender: FDA-Public Use
  Company Number: DE-JNJFOC-20100703327

PATIENT
  Sex: Female
  Weight: 50 kg

DRUGS (2)
  1. MELOXICAM [Interacting]
     Indication: ARTHROPATHY
     Route: 048
  2. CILEST [Suspect]
     Indication: CONTRACEPTION
     Route: 048

REACTIONS (3)
  - PREGNANCY ON ORAL CONTRACEPTIVE [None]
  - DRUG INTERACTION [None]
  - DRUG EXPOSURE DURING PREGNANCY [None]
